FAERS Safety Report 4523889-4 (Version None)
Quarter: 2004Q4

REPORT INFORMATION
  Report Type: 
  Country: None (occurrence: None)
  Receive Date: 20041116
  Receipt Date: 20040803
  Transmission Date: 20050328
  Serious: No
  Sender: FDA-Public Use
  Company Number: S04-USA-05757-01

PATIENT
  Sex: Male

DRUGS (5)
  1. NAMENDA (MEMANTINE0 [Suspect]
     Indication: DEMENTIA
  2. LABETALOL [Concomitant]
  3. ARICEPT 9DONEPEZIL HYDROCHLORIDE) [Concomitant]
  4. ASPIRIN [Concomitant]
  5. SINGULARI ^MERCK^ (MONTELUKAST SODIUM) [Concomitant]

REACTIONS (1)
  - LACRIMATION INCREASED [None]
